FAERS Safety Report 21862074 (Version 2)
Quarter: 2023Q1

REPORT INFORMATION
  Report Type: Spontaneous
  Country: US (occurrence: US)
  Receive Date: 20230113
  Receipt Date: 20230206
  Transmission Date: 20230418
  Serious: Yes (Life-Threatening, Other)
  Sender: FDA-Public Use
  Company Number: US-CELLTRION INC.-2023US000464

PATIENT

DRUGS (25)
  1. TRUXIMA [Suspect]
     Active Substance: RITUXIMAB-ABBS
     Indication: Non-Hodgkin^s lymphoma
     Dosage: 840 MG OR 375 MG PER METER SQUARED ( RUNNING AT A RATE OF 150 ML PER HOUR)
  2. TRUXIMA [Suspect]
     Active Substance: RITUXIMAB-ABBS
     Indication: Pancytopenia
     Dosage: 840 MG OR 375 MG PER METER SQUARED ( RUNNING AT A RATE OF 150 ML PER HOUR)
  3. TRUXIMA [Suspect]
     Active Substance: RITUXIMAB-ABBS
     Dosage: 840 MG OR 375 MG PER METER SQUARED ( RUNNING AT A RATE OF 150 ML PER HOUR)
     Dates: start: 20230106
  4. ALBUTEROL SULFATE [Interacting]
     Active Substance: ALBUTEROL SULFATE
     Indication: Product used for unknown indication
     Dosage: 90MCG/DOSE
  5. ALLOPURINOL [Concomitant]
     Active Substance: ALLOPURINOL
  6. PRILOSEC [Concomitant]
     Active Substance: OMEPRAZOLE MAGNESIUM
  7. DICYCLOMINE [Concomitant]
     Active Substance: DICYCLOMINE HYDROCHLORIDE
  8. GLUCOVANCE [Concomitant]
     Active Substance: GLYBURIDE\METFORMIN HYDROCHLORIDE
  9. PAXIL [Concomitant]
     Active Substance: PAROXETINE HYDROCHLORIDE
  10. PRAVACHOL [Concomitant]
     Active Substance: PRAVASTATIN SODIUM
  11. ATIVAN [Concomitant]
     Active Substance: LORAZEPAM
  12. PRINZIDE [Concomitant]
     Active Substance: HYDROCHLOROTHIAZIDE\LISINOPRIL
  13. METFORMIN [Concomitant]
     Active Substance: METFORMIN HYDROCHLORIDE
  14. GLIPIZIDE [Concomitant]
     Active Substance: GLIPIZIDE
  15. ANORO ELLIPTA [Concomitant]
     Active Substance: UMECLIDINIUM BROMIDE\VILANTEROL TRIFENATATE
  16. LOPERAMIDE [Concomitant]
     Active Substance: LOPERAMIDE
  17. MAGNESIUM [Concomitant]
     Active Substance: MAGNESIUM
  18. LORATADINE [Concomitant]
     Active Substance: LORATADINE
  19. ALBUTEROL [Concomitant]
     Active Substance: ALBUTEROL
  20. FLONASE [Concomitant]
     Active Substance: FLUTICASONE PROPIONATE
  21. PERCOCET [Concomitant]
     Active Substance: ACETAMINOPHEN\OXYCODONE HYDROCHLORIDE
  22. VITAMINS [Concomitant]
     Active Substance: VITAMINS
  23. VITAMIN C [Concomitant]
     Active Substance: ASCORBIC ACID
  24. VITAMIN E [Concomitant]
     Active Substance: .ALPHA.-TOCOPHEROL
  25. HERBALS\SAW PALMETTO [Concomitant]
     Active Substance: HERBALS\SAW PALMETTO

REACTIONS (6)
  - Chills [Unknown]
  - Tremor [Unknown]
  - Dyspnoea [Unknown]
  - Pancytopenia [Unknown]
  - Off label use [Unknown]
  - Overdose [Unknown]
